FAERS Safety Report 11684348 (Version 1)
Quarter: 2015Q4

REPORT INFORMATION
  Report Type: Spontaneous
  Country: JP (occurrence: JP)
  Receive Date: 20151029
  Receipt Date: 20151029
  Transmission Date: 20160304
  Serious: Yes (Other)
  Sender: FDA-Public Use
  Company Number: JP-GILEAD-2015-0175383

PATIENT
  Age: 74 Year
  Sex: Female

DRUGS (4)
  1. PREDNISOLONE. [Concomitant]
     Active Substance: PREDNISOLONE
     Indication: MYASTHENIA GRAVIS
     Dosage: 9 MG, 1D
     Dates: start: 200307
  2. INSULIN [Concomitant]
     Active Substance: INSULIN NOS
     Indication: DIABETES MELLITUS
     Dosage: UNK
     Route: 065
  3. HEPSERA [Suspect]
     Active Substance: ADEFOVIR DIPIVOXIL
     Indication: CHRONIC HEPATITIS B
     Dosage: 10 MG, QD
     Route: 048
     Dates: start: 20080710, end: 20150415
  4. MESTINON [Concomitant]
     Active Substance: PYRIDOSTIGMINE BROMIDE
     Indication: MYASTHENIA GRAVIS
     Dosage: 180 MG, 1D
     Route: 065

REACTIONS (13)
  - Compression fracture [Unknown]
  - Femoral neck fracture [Unknown]
  - Osteomalacia [Recovering/Resolving]
  - Bone pain [Unknown]
  - Scapula fracture [Unknown]
  - Fanconi syndrome acquired [Not Recovered/Not Resolved]
  - Pathological fracture [Unknown]
  - Inflammation [Unknown]
  - Osteomyelitis [Unknown]
  - Osteonecrosis [Unknown]
  - Fall [Unknown]
  - Arthritis [Unknown]
  - Atypical femur fracture [Unknown]

NARRATIVE: CASE EVENT DATE: 20140113
